FAERS Safety Report 4532518-5 (Version None)
Quarter: 2004Q4

REPORT INFORMATION
  Report Type: 
  Country: None (occurrence: None)
  Receive Date: 20041206
  Receipt Date: 20040917
  Transmission Date: 20050328
  Serious: Yes (Other)
  Sender: FDA-Public Use
  Company Number: USA040978651

PATIENT
  Age: 62 Year
  Sex: Male

DRUGS (2)
  1. ALIMTA [Suspect]
     Indication: PERITONEAL MESOTHELIOMA MALIGNANT
     Dosage: 500 MG/M2 OTHER
     Dates: start: 20040809
  2. CISPLATIN [Concomitant]

REACTIONS (2)
  - NAUSEA [None]
  - VOMITING [None]
